FAERS Safety Report 25764503 (Version 1)
Quarter: 2025Q3

REPORT INFORMATION
  Report Type: Spontaneous
  Country: US (occurrence: US)
  Receive Date: 20250905
  Receipt Date: 20250905
  Transmission Date: 20251020
  Serious: No
  Sender: DOMPE FARMACEUTICI
  Company Number: US-FARMAPROD-202501-0051

PATIENT
  Age: 47 Year
  Sex: Female

DRUGS (4)
  1. OXERVATE [Suspect]
     Active Substance: CENEGERMIN-BKBJ
     Indication: Dry eye
     Route: 047
     Dates: start: 20241227
  2. OXERVATE [Suspect]
     Active Substance: CENEGERMIN-BKBJ
     Indication: Dry eye
  3. OXERVATE [Suspect]
     Active Substance: CENEGERMIN-BKBJ
     Indication: Neurotrophic keratopathy
  4. LEVOTHYROXINE SODIUM [Concomitant]
     Active Substance: LEVOTHYROXINE SODIUM

REACTIONS (4)
  - Apraxia [Recovering/Resolving]
  - Hypersensitivity [Unknown]
  - Off label use [Unknown]
  - Eye irritation [Unknown]
